FAERS Safety Report 20852322 (Version 4)
Quarter: 2022Q4

REPORT INFORMATION
  Report Type: Report from Study
  Country: US (occurrence: US)
  Receive Date: 20220520
  Receipt Date: 20221206
  Transmission Date: 20230113
  Serious: Yes (Hospitalization, Other)
  Sender: FDA-Public Use
  Company Number: US-ABBVIE-22K-163-4396528-00

PATIENT
  Age: 60 Year
  Sex: Female
  Weight: 68 kg

DRUGS (17)
  1. HUMIRA [Suspect]
     Active Substance: ADALIMUMAB
     Indication: Psoriatic arthropathy
     Dosage: CITRATE FREE
     Route: 058
  2. HUMIRA [Suspect]
     Active Substance: ADALIMUMAB
     Indication: Sjogren^s syndrome
     Dosage: CF
     Route: 058
  3. HUMIRA [Suspect]
     Active Substance: ADALIMUMAB
     Indication: Sjogren^s syndrome
  4. MODERNA COVID-19 VACCINE [Concomitant]
     Active Substance: ELASOMERAN
     Indication: COVID-19 immunisation
     Dosage: 1ST DOSE - ONCE
     Route: 030
     Dates: start: 20210217, end: 20210217
  5. MODERNA COVID-19 VACCINE [Concomitant]
     Active Substance: ELASOMERAN
     Indication: COVID-19 immunisation
     Dosage: 2ND DOSE -  ONCE
     Route: 030
     Dates: start: 20210822, end: 20210822
  6. MODERNA COVID-19 VACCINE [Concomitant]
     Active Substance: ELASOMERAN
     Indication: COVID-19 immunisation
     Dosage: 3RD BOOSTER DOSE - ONCE
     Route: 030
     Dates: start: 20211220, end: 20211220
  7. METFORMIN [Concomitant]
     Active Substance: METFORMIN HYDROCHLORIDE
     Indication: Type 2 diabetes mellitus
  8. JARDIANCE [Concomitant]
     Active Substance: EMPAGLIFLOZIN
     Indication: Type 2 diabetes mellitus
  9. METOPROLOL [Concomitant]
     Active Substance: METOPROLOL
     Indication: Hypertension
  10. DEPAKOTE [Concomitant]
     Active Substance: DIVALPROEX SODIUM
     Indication: Migraine
  11. TIZANIDINE [Concomitant]
     Active Substance: TIZANIDINE
     Indication: Muscle relaxant therapy
  12. FOLIC ACID [Concomitant]
     Active Substance: FOLIC ACID
     Indication: Vitamin supplementation
  13. METHOTREXATE [Concomitant]
     Active Substance: METHOTREXATE
     Indication: Psoriatic arthropathy
  14. FLUOXETINE [Concomitant]
     Active Substance: FLUOXETINE HYDROCHLORIDE
     Indication: Product used for unknown indication
  15. PANTOPRAZOLE [Concomitant]
     Active Substance: PANTOPRAZOLE
     Indication: Product used for unknown indication
  16. TRAZODONE [Concomitant]
     Active Substance: TRAZODONE HYDROCHLORIDE
     Indication: Product used for unknown indication
  17. MORPHINE [Concomitant]
     Active Substance: MORPHINE
     Indication: Product used for unknown indication
     Dosage: EXTENDED RELEASE

REACTIONS (23)
  - Optic nerve injury [Not Recovered/Not Resolved]
  - Obstruction [Not Recovered/Not Resolved]
  - Facial paralysis [Unknown]
  - Visual impairment [Not Recovered/Not Resolved]
  - Headache [Not Recovered/Not Resolved]
  - Eye pain [Not Recovered/Not Resolved]
  - Facial paralysis [Not Recovered/Not Resolved]
  - Eye pain [Unknown]
  - Eye operation [Recovering/Resolving]
  - Fungal skin infection [Unknown]
  - Keratomileusis [Unknown]
  - Transient ischaemic attack [Not Recovered/Not Resolved]
  - Hospitalisation [Recovering/Resolving]
  - Cataract [Not Recovered/Not Resolved]
  - Condition aggravated [Unknown]
  - Ocular discomfort [Not Recovered/Not Resolved]
  - Off label use [Unknown]
  - Speech disorder [Not Recovered/Not Resolved]
  - Ocular hyperaemia [Not Recovered/Not Resolved]
  - Tooth fracture [Not Recovered/Not Resolved]
  - Fall [Recovered/Resolved]
  - Sinusitis [Unknown]
  - Migraine [Unknown]

NARRATIVE: CASE EVENT DATE: 20211201
